FAERS Safety Report 4868785-8 (Version None)
Quarter: 2005Q4

REPORT INFORMATION
  Report Type: 
  Country: None (occurrence: None)
  Receive Date: 20051223
  Receipt Date: 20051215
  Transmission Date: 20060501
  Serious: Yes (Death, Hospitalization, Disabling)
  Sender: FDA-Public Use
  Company Number: 2005138901

PATIENT
  Age: 78 Year
  Sex: Male
  Weight: 78 kg

DRUGS (12)
  1. VFEND [Suspect]
     Indication: CANDIDIASIS
     Dosage: SEE IMAGE, INTRAVENOUS
     Route: 042
     Dates: start: 20050907, end: 20050910
  2. VFEND [Suspect]
     Indication: CANDIDIASIS
     Dosage: SEE IMAGE, INTRAVENOUS
     Route: 042
     Dates: start: 20050911, end: 20050912
  3. PREDNISOLONE [Concomitant]
  4. COTRIM [Concomitant]
  5. OMEPRAZOLE [Concomitant]
  6. MICAFUNGIN (MICAFUNGIN) [Concomitant]
  7. TIENAM (CILASTATIN, IMIPENEM) [Concomitant]
  8. DORMICUM FOR INJECTION (MIDAZOLAM HYDROCHLORIDE) [Concomitant]
  9. AMINOTRIPA 1 (AMINO ACIDS NOS, CARBOHYDRATES NOS, ELECTROLYTES NOS) [Concomitant]
  10. MULTAMIN (VITAMINS NOS) [Concomitant]
  11. FAMOTIDINE [Concomitant]
  12. NOVOLIN R [Concomitant]

REACTIONS (8)
  - CONDITION AGGRAVATED [None]
  - GENERAL PHYSICAL HEALTH DETERIORATION [None]
  - HAEMODIALYSIS [None]
  - INTERSTITIAL LUNG DISEASE [None]
  - METABOLIC ACIDOSIS [None]
  - RENAL FAILURE ACUTE [None]
  - RESPIRATORY FAILURE [None]
  - TRICHOSPORON INFECTION [None]
